FAERS Safety Report 9603513 (Version 10)
Quarter: 2017Q4

REPORT INFORMATION
  Report Type: Report from Study
  Country: FR (occurrence: FR)
  Receive Date: 20131007
  Receipt Date: 20171204
  Transmission Date: 20180321
  Serious: Yes (Other)
  Sender: FDA-Public Use
  Company Number: FR-ROCHE-1143954

PATIENT

DRUGS (3)
  1. RITUXIMAB. [Suspect]
     Active Substance: RITUXIMAB
     Indication: ANTI-NEUTROPHIL CYTOPLASMIC ANTIBODY POSITIVE VASCULITIS
     Dosage: ON D1, D 15, 5.5 MONTHS LATER, THEN EVERY 6 MONTHS FOR A TOTAL OF 5 INFUSIONS OVER 18 MONTHS.
     Route: 042
  2. PREDNISONE. [Concomitant]
     Active Substance: PREDNISONE
     Dosage: REMISSION-INDUCTION THERAPY
     Route: 065
  3. PREDNISONE. [Concomitant]
     Active Substance: PREDNISONE
     Dosage: TREATMENT WAS TAPERED AND THEN KEPT AT A LOW DOSE (APPROXIMATELY 5 MG PER DAY) FOR AT LEAST 18 MONTH
     Route: 065

REACTIONS (8)
  - Oesophageal candidiasis [Unknown]
  - Prostate cancer [Unknown]
  - Tuberculosis [Unknown]
  - Cerebrovascular accident [Unknown]
  - Pneumocystis jirovecii pneumonia [Unknown]
  - Campylobacter gastroenteritis [Unknown]
  - Bronchitis [Unknown]
  - Herpes zoster [Unknown]
